FAERS Safety Report 4521674-0 (Version None)
Quarter: 2004Q4

REPORT INFORMATION
  Report Type: 
  Country: None (occurrence: None)
  Receive Date: 20041206
  Receipt Date: 20041119
  Transmission Date: 20050328
  Serious: Yes (Hospitalization)
  Sender: FDA-Public Use
  Company Number: 2004-BP-12181RO

PATIENT
  Age: 76 Year
  Sex: Male

DRUGS (12)
  1. CLARITHROMYCIN TABLETS USP, 250MG (CLARITHROMYCIN) [Suspect]
     Indication: GASTRITIS EROSIVE
     Dosage: 1 G
  2. CLARITHROMYCIN TABLETS USP, 250MG (CLARITHROMYCIN) [Suspect]
     Indication: HELICOBACTER INFECTION
     Dosage: 1 G
  3. COLCHICINE (COLCHICINE) [Suspect]
     Indication: FAMILIAL MEDITERRANEAN FEVER
     Dosage: 1.5 MG, PO
     Route: 048
  4. AMOXICILLIN [Suspect]
     Indication: GASTRITIS EROSIVE
     Dosage: 2 G
  5. AMOXICILLIN [Suspect]
     Indication: HELICOBACTER INFECTION
     Dosage: 2 G
  6. OMEPRAZOLE [Suspect]
     Indication: GASTRITIS EROSIVE
     Dosage: 40 MG
  7. OMEPRAZOLE [Suspect]
     Indication: HELICOBACTER INFECTION
     Dosage: 40 MG
  8. ACEBUTOLOL [Concomitant]
  9. RAMIPRIL [Concomitant]
  10. SPIRONOLACTONE [Concomitant]
  11. MOLSIDOMINE (MOLSIDOMINE) [Concomitant]
  12. ACETYLSALICYLIC (ACETYLSALICYLIC SODIUM) [Concomitant]

REACTIONS (17)
  - ABDOMINAL PAIN [None]
  - ALOPECIA [None]
  - BLOOD BICARBONATE ABNORMAL [None]
  - BLOOD CREATININE INCREASED [None]
  - BLOOD UREA INCREASED [None]
  - C-REACTIVE PROTEIN INCREASED [None]
  - CHOLESTASIS [None]
  - DEHYDRATION [None]
  - DIARRHOEA HAEMORRHAGIC [None]
  - HAEMATURIA [None]
  - HYPONATRAEMIA [None]
  - LIPASE INCREASED [None]
  - OLIGURIA [None]
  - PANCYTOPENIA [None]
  - PROTEINURIA [None]
  - PYREXIA [None]
  - VOMITING [None]
